FAERS Safety Report 9095699 (Version 3)
Quarter: 2013Q2

REPORT INFORMATION
  Report Type: Report from Study
  Country: US (occurrence: US)
  Receive Date: 20130219
  Receipt Date: 20130614
  Transmission Date: 20140414
  Serious: Yes (Other)
  Sender: FDA-Public Use
  Company Number: US-TEVA-386368USA

PATIENT
  Age: 20 Year
  Sex: Female

DRUGS (2)
  1. CLARAVIS [Suspect]
     Dosage: 20 MILLIGRAM DAILY;
     Dates: start: 20121119, end: 20130212
  2. NUVARING [Concomitant]

REACTIONS (1)
  - Unintended pregnancy [Recovered/Resolved]
